FAERS Safety Report 9202811 (Version 1)
Quarter: 2013Q2

REPORT INFORMATION
  Report Type: Report from Study
  Country: GB (occurrence: GB)
  Receive Date: 20130401
  Receipt Date: 20130401
  Transmission Date: 20140414
  Serious: Yes (Death)
  Sender: FDA-Public Use
  Company Number: GB-AMGEN-GBRCT2013021831

PATIENT
  Age: 77 Year
  Sex: Male
  Weight: 86 kg

DRUGS (1)
  1. ETANERCEPT [Suspect]
     Indication: PSORIATIC ARTHROPATHY
     Dosage: 25 MG, 2 TIMES/WK
     Dates: start: 20030722

REACTIONS (4)
  - Pneumonia aspiration [Fatal]
  - Large intestinal obstruction [Fatal]
  - Left ventricular failure [Fatal]
  - Arthritis bacterial [Fatal]
